FAERS Safety Report 4363060-2 (Version None)
Quarter: 2004Q2

REPORT INFORMATION
  Report Type: 
  Country: None (occurrence: None)
  Receive Date: 20040518
  Receipt Date: 20040506
  Transmission Date: 20050107
  Serious: Yes (Death, Hospitalization)
  Sender: FDA-Public Use
  Company Number: JP-JNJFOC-20040501729

PATIENT
  Age: 68 Year
  Sex: Female

DRUGS (13)
  1. MICONAZOLE [Suspect]
     Indication: NAIL TINEA
     Dosage: 200 MG , 1 IN 1 DAY, INTRAVENOUS
     Route: 042
     Dates: start: 20000925, end: 20001009
  2. LOXOPROFEN SODIUM (LOXOPROFEN SODIUM) TABLETS [Suspect]
     Indication: POLYARTHRITIS
     Dosage: 200 MG , 1 IN 1 DAY, ROAL
     Route: 048
     Dates: start: 20000928, end: 20001009
  3. PREDNISOLONE [Concomitant]
  4. ACEMETACIN (ACEMETACIN)UNKNOWN [Concomitant]
  5. D-PENICILLAMINE (PENICILLAMINE) UNKNOWN [Concomitant]
  6. CETRAXATE HYDROCHLORIDE (CETRAXATE HYDROCHLORIDE) [Concomitant]
  7. DIPYRIDAMOLE (DIPYRIDAMOLE) UNKNOWN [Concomitant]
  8. METHOTREXATE (METOTHREXATE) UNKNOWN [Concomitant]
  9. INDOMETACIN FARNESIL (INDOMETACIN) UNKNOWN [Concomitant]
  10. ASPOXICILLIN (ASPOXICILLIN) UNKNOWN [Concomitant]
  11. NORFLOXACIN [Concomitant]
  12. ULINASTATIN (ULINASTATIN) UNKNOWN [Concomitant]
  13. S-SULFONATED HUMAN IMMUNOGLOBULIN (SULFONAMIDES) [Concomitant]

REACTIONS (13)
  - ALANINE AMINOTRANSFERASE INCREASED [None]
  - ASPARTATE AMINOTRANSFERASE INCREASED [None]
  - COLITIS [None]
  - DIARRHOEA [None]
  - HAEMORRHAGE [None]
  - HEPATIC FUNCTION ABNORMAL [None]
  - MULTI-ORGAN FAILURE [None]
  - OCULAR HYPERAEMIA [None]
  - OEDEMA PERIPHERAL [None]
  - PAIN IN EXTREMITY [None]
  - PANCREATITIS ACUTE [None]
  - PYREXIA [None]
  - STEVENS-JOHNSON SYNDROME [None]
